FAERS Safety Report 8606040 (Version 4)
Quarter: 2016Q2

REPORT INFORMATION
  Report Type: Spontaneous
  Country: US (occurrence: US)
  Receive Date: 20120608
  Receipt Date: 20160422
  Transmission Date: 20160815
  Serious: Yes (Hospitalization)
  Sender: FDA-Public Use
  Company Number: US-ASTRAZENECA-2012SE03153

PATIENT
  Age: 1078 Month
  Sex: Female
  Weight: 63.5 kg

DRUGS (4)
  1. NEXIUM [Suspect]
     Active Substance: ESOMEPRAZOLE MAGNESIUM
     Route: 048
  2. ATACAND [Suspect]
     Active Substance: CANDESARTAN CILEXETIL
     Route: 048
  3. PAROXETINE. [Concomitant]
     Active Substance: PAROXETINE
  4. FUROSEMIDE. [Concomitant]
     Active Substance: FUROSEMIDE
     Indication: DIURETIC THERAPY

REACTIONS (7)
  - Gait disturbance [Unknown]
  - Initial insomnia [Unknown]
  - Fall [Unknown]
  - Spinal fracture [Unknown]
  - Concussion [Unknown]
  - Hip fracture [Unknown]
  - Hypoacusis [Unknown]

NARRATIVE: CASE EVENT DATE: 201509
